FAERS Safety Report 10300679 (Version 7)
Quarter: 2014Q4

REPORT INFORMATION
  Report Type: Report from Study
  Country: PL (occurrence: PL)
  Receive Date: 20140714
  Receipt Date: 20141028
  Transmission Date: 20150528
  Serious: Yes (Hospitalization)
  Sender: FDA-Public Use
  Company Number: PL-BIOGENIDEC-2013BI115454

PATIENT
  Age: 55 Year
  Sex: Male
  Weight: 75 kg

DRUGS (5)
  1. NATALIZUMAB [Suspect]
     Active Substance: NATALIZUMAB
     Indication: SECONDARY PROGRESSIVE MULTIPLE SCLEROSIS
     Route: 042
     Dates: start: 20121022, end: 20130724
  2. ESSELIVE DUO [Concomitant]
     Dates: start: 201112, end: 20130211
  3. FEBROFEN [Concomitant]
     Route: 048
     Dates: start: 2010, end: 20130213
  4. NIMESIL [Concomitant]
     Active Substance: NIMESULIDE
     Route: 048
     Dates: start: 2010, end: 20130213
  5. ESSELIVE DUO [Concomitant]
     Dates: start: 20130212, end: 20130801

REACTIONS (1)
  - Drug-induced liver injury [Not Recovered/Not Resolved]

NARRATIVE: CASE EVENT DATE: 20131125
